FAERS Safety Report 4714855-4 (Version None)
Quarter: 2005Q3

REPORT INFORMATION
  Report Type: 
  Country: None (occurrence: None)
  Receive Date: 20050715
  Receipt Date: 20050704
  Transmission Date: 20060218
  Serious: Yes (Life-Threatening)
  Sender: FDA-Public Use
  Company Number: CR-BRISTOL-MYERS SQUIBB COMPANY-13024310

PATIENT
  Age: 48 Year
  Sex: Female
  Weight: 47 kg

DRUGS (3)
  1. VIDEX [Suspect]
     Indication: HIV INFECTION
     Route: 048
     Dates: start: 20031007, end: 20050304
  2. EFAVIRENZ [Suspect]
     Indication: HIV INFECTION
  3. ZIDOVUDINE [Suspect]
     Indication: HIV INFECTION

REACTIONS (3)
  - GASTROINTESTINAL HAEMORRHAGE [None]
  - PORTAL HYPERTENSION [None]
  - VARICES OESOPHAGEAL [None]
